FAERS Safety Report 26034972 (Version 1)
Quarter: 2025Q4

REPORT INFORMATION
  Report Type: Spontaneous
  Country: US (occurrence: None)
  Receive Date: 20251112
  Receipt Date: 20251112
  Transmission Date: 20260118
  Serious: No
  Sender: FDA-CTU
  Company Number: None

PATIENT

DRUGS (1)
  1. AMJEVITA [Suspect]
     Active Substance: ADALIMUMAB-ATTO

REACTIONS (2)
  - Therapeutic product effect incomplete [None]
  - Therapy change [None]

NARRATIVE: CASE EVENT DATE: 20251111
